FAERS Safety Report 20403861 (Version 1)
Quarter: 2022Q1

REPORT INFORMATION
  Report Type: 
  Country: None (occurrence: None)
  Receive Date: 20220131
  Receipt Date: 20220131
  Transmission Date: 20220424
  Serious: No
  Sender: FDA-Public Use
  Company Number: None

PATIENT
  Age: 71 Year
  Sex: Female

DRUGS (1)
  1. COSOPT PF [Suspect]
     Active Substance: DORZOLAMIDE HYDROCHLORIDE\TIMOLOL MALEATE

REACTIONS (3)
  - Drug ineffective [Not Recovered/Not Resolved]
  - Lacrimation increased [Recovered/Resolved]
  - Drug hypersensitivity [Unknown]
